FAERS Safety Report 14222509 (Version 3)
Quarter: 2018Q1

REPORT INFORMATION
  Report Type: Report from Study
  Country: US (occurrence: US)
  Receive Date: 20171124
  Receipt Date: 20180215
  Transmission Date: 20180508
  Serious: Yes (Hospitalization)
  Sender: FDA-Public Use
  Company Number: US-ROCHE-2027991

PATIENT
  Age: 72 Year
  Sex: Male
  Weight: 112.5 kg

DRUGS (1)
  1. OCREVUS [Suspect]
     Active Substance: OCRELIZUMAB
     Indication: RELAPSING-REMITTING MULTIPLE SCLEROSIS
     Dosage: INITIAL DOSE: 300 MG ON DAY 1 AND DAY 15?SUBSEQUENT DOSE: 600 MG EVEBRY 6 MONTHS
     Route: 065
     Dates: start: 20170608

REACTIONS (7)
  - Chills [Unknown]
  - Cognitive disorder [Not Recovered/Not Resolved]
  - Skin abrasion [Recovered/Resolved]
  - Cellulitis [Not Recovered/Not Resolved]
  - Rhabdomyolysis [Not Recovered/Not Resolved]
  - Tremor [Not Recovered/Not Resolved]
  - Asthenia [Not Recovered/Not Resolved]

NARRATIVE: CASE EVENT DATE: 20171028
